FAERS Safety Report 12711523 (Version 3)
Quarter: 2016Q4

REPORT INFORMATION
  Report Type: Spontaneous
  Country: US (occurrence: US)
  Receive Date: 20160902
  Receipt Date: 20161117
  Transmission Date: 20170207
  Serious: No
  Sender: FDA-Public Use
  Company Number: US-PFIZER INC-2016139926

PATIENT
  Age: 2 Year
  Sex: Female
  Weight: 13 kg

DRUGS (9)
  1. PHENOBARBITAL. [Concomitant]
     Active Substance: PHENOBARBITAL
     Indication: SEIZURE
     Dosage: 8.5 ML, 2X/DAY
     Route: 048
     Dates: start: 201402
  2. OXCARBAZEPINE. [Concomitant]
     Active Substance: OXCARBAZEPINE
     Indication: SEIZURE
     Dosage: 2.5 ML, 2X/DAY
     Route: 048
     Dates: start: 201602
  3. RAPAMUNE [Suspect]
     Active Substance: SIROLIMUS
     Indication: RENAL ARTERY DISSECTION
     Dosage: 1 ML, 1X/DAY
     Route: 048
     Dates: start: 201602
  4. RAPAMUNE [Suspect]
     Active Substance: SIROLIMUS
     Indication: EPILEPSY
     Dosage: 0.75 MG, 1X/DAY (FOR 1 WEEK)
     Route: 048
     Dates: start: 201602
  5. RAPAMUNE [Suspect]
     Active Substance: SIROLIMUS
     Dosage: 2 ML, DAILY
     Route: 048
     Dates: start: 20160901
  6. RAPAMUNE [Suspect]
     Active Substance: SIROLIMUS
     Dosage: 2 MG/ML, 1X/DAY
     Dates: start: 201602
  7. TOPAMAX [Concomitant]
     Active Substance: TOPIRAMATE
     Dosage: UNK
     Dates: start: 201404
  8. PHENOBARBITAL. [Concomitant]
     Active Substance: PHENOBARBITAL
     Dosage: UNK
     Dates: start: 201402
  9. TOPAMAX [Concomitant]
     Active Substance: TOPIRAMATE
     Indication: SEIZURE
     Dosage: 75 MG, 2X/DAY
     Route: 048
     Dates: start: 201404

REACTIONS (2)
  - Drug level decreased [Recovered/Resolved]
  - Product use issue [Recovered/Resolved]

NARRATIVE: CASE EVENT DATE: 20160304
